FAERS Safety Report 9364231 (Version 1)
Quarter: 2013Q2

REPORT INFORMATION
  Report Type: Spontaneous
  Country: US (occurrence: None)
  Receive Date: 20130619
  Receipt Date: 20130619
  Transmission Date: 20140414
  Serious: Yes (Other)
  Sender: FDA-Public Use
  Company Number: LMI-2013-00231

PATIENT
  Age: 48 Year
  Sex: Male
  Weight: 111.13 kg

DRUGS (5)
  1. DEFINITY [Suspect]
     Indication: STRESS ECHOCARDIOGRAM
     Dosage: 1.3 ML DEFINTIY DILUTED WITH 8.7 ML NORMAL SALINE (2.5 ML), INTRAVENOUS BOLUS
     Route: 040
     Dates: start: 20130606, end: 20130606
  2. FLEXERIL (CYCLOBENZAPRINE HYDROCHLORIDE) [Suspect]
  3. VICODIN [Suspect]
  4. FENTANYL PATCH (FENTANYL) [Concomitant]
  5. AMLODIPINE (AMLODIPINE) [Suspect]

REACTIONS (2)
  - Dyspnoea [None]
  - Oxygen saturation decreased [None]
